FAERS Safety Report 23223346 (Version 1)
Quarter: 2023Q4

REPORT INFORMATION
  Report Type: Spontaneous
  Country: KZ (occurrence: KZ)
  Receive Date: 20231123
  Receipt Date: 20231123
  Transmission Date: 20240109
  Serious: Yes (Death)
  Sender: FDA-Public Use
  Company Number: KZ-Techdow-2023Techdow000190

PATIENT
  Age: 28 Year
  Sex: Female

DRUGS (17)
  1. ENOXAPARIN SODIUM [Suspect]
     Active Substance: ENOXAPARIN SODIUM
     Indication: Anticoagulant therapy
     Dosage: 40MG,QD
     Dates: start: 20200629, end: 20200709
  2. CEFTRIAXONE [Concomitant]
     Active Substance: CEFTRIAXONE\CEFTRIAXONE SODIUM
     Indication: Antibiotic therapy
     Dosage: 1.0G,BID
     Dates: start: 20200627, end: 20200629
  3. ERTAPENEM [Concomitant]
     Active Substance: ERTAPENEM
     Indication: Antibiotic therapy
     Dosage: 1.0G,QD
     Dates: start: 20200627, end: 20200707
  4. Moxifoxacin [Concomitant]
     Indication: Antibiotic therapy
     Dosage: 400MG,BID
     Dates: start: 20200627, end: 20200707
  5. LOPINAVIR [Concomitant]
     Active Substance: LOPINAVIR
     Indication: Antiretroviral therapy
     Dosage: 200MG,BID
     Dates: start: 20200629, end: 20200707
  6. RITONAVIR [Concomitant]
     Active Substance: RITONAVIR
     Indication: Antiretroviral therapy
     Dosage: 50MG,BID
     Dates: start: 20200629, end: 20200707
  7. DEXAMETHASONE [Concomitant]
     Active Substance: DEXAMETHASONE
     Indication: Adrenocortical steroid therapy
     Dosage: 8MG,BID
     Dates: start: 20200629, end: 20200709
  8. ASPIRIN [Concomitant]
     Active Substance: ASPIRIN
     Indication: Antiplatelet therapy
     Dosage: 100MG,QD
     Dates: start: 20200629, end: 20200709
  9. SODIUM CHLORIDE [Concomitant]
     Active Substance: SODIUM CHLORIDE
     Indication: Postoperative care
     Dosage: 200ML,SINGLE DOSE
     Dates: start: 20200702, end: 20200702
  10. ALBUMIN HUMAN [Concomitant]
     Active Substance: ALBUMIN HUMAN
     Indication: Postoperative care
     Dosage: 100ML,SINGLE DOSE
     Dates: start: 20200702, end: 20200702
  11. KETAMINE [Concomitant]
     Active Substance: KETAMINE
     Indication: Postoperative care
     Dosage: QD
     Dates: start: 20200702, end: 20200704
  12. KETOPROFEN [Concomitant]
     Active Substance: KETOPROFEN
     Indication: Postoperative care
     Dosage: 100MG,BID
     Dates: start: 20200702, end: 20200707
  13. ARDUAN [Concomitant]
     Active Substance: PIPECURONIUM BROMIDE
     Indication: Postoperative care
     Dosage: SINGLE DOSE
     Dates: start: 20200702, end: 20200702
  14. ATRACURIUM BESYLATE [Concomitant]
     Active Substance: ATRACURIUM BESYLATE
     Indication: Postoperative care
     Dosage: 25MG,QD
     Dates: start: 20200702, end: 20200706
  15. OXYTOCIN [Concomitant]
     Active Substance: OXYTOCIN
     Indication: Postoperative care
     Dosage: 5IU,QD
     Dates: start: 20200702, end: 20200705
  16. METOCLOPRAMIDE [Concomitant]
     Active Substance: METOCLOPRAMIDE
     Indication: Postoperative care
     Dosage: 5MG,SINGLE DOSE
     Dates: start: 20200702, end: 20200702
  17. PROPOFOL [Concomitant]
     Active Substance: PROPOFOL
     Indication: Sedative therapy
     Dosage: 500MG,BID
     Dates: start: 20200709, end: 20200710

REACTIONS (3)
  - Pulmonary embolism [Fatal]
  - Disseminated intravascular coagulation [Fatal]
  - Exposure during pregnancy [Unknown]

NARRATIVE: CASE EVENT DATE: 20200629
